FAERS Safety Report 26185624 (Version 1)
Quarter: 2025Q4

REPORT INFORMATION
  Report Type: Spontaneous
  Country: US (occurrence: None)
  Receive Date: 20251219
  Receipt Date: 20251219
  Transmission Date: 20260117
  Serious: Yes (Other)
  Sender: FDA-CTU
  Company Number: None

PATIENT
  Age: 65 Year
  Sex: Female
  Weight: 57 kg

DRUGS (1)
  1. IRON SUCROSE [Suspect]
     Active Substance: IRON SUCROSE
     Route: 041
     Dates: start: 20251120, end: 20251202

REACTIONS (9)
  - Abdominal discomfort [None]
  - Infusion related reaction [None]
  - General physical health deterioration [None]
  - Asthenia [None]
  - Vomiting [None]
  - Incontinence [None]
  - Hypersensitivity [None]
  - Diarrhoea [None]
  - Pulse pressure increased [None]

NARRATIVE: CASE EVENT DATE: 20251202
